FAERS Safety Report 5601887-7 (Version None)
Quarter: 2008Q1

REPORT INFORMATION
  Report Type: 
  Country: None (occurrence: None)
  Receive Date: 20080124
  Receipt Date: 20080116
  Transmission Date: 20080703
  Serious: Yes (Other)
  Sender: FDA-Public Use
  Company Number: DE-PFIZER INC-2008005883

PATIENT
  Sex: Female

DRUGS (2)
  1. XALATAN [Suspect]
     Route: 047
  2. ALL OTHER THERAPEUTIC PRODUCTS [Concomitant]

REACTIONS (9)
  - ANGINA PECTORIS [None]
  - ARRHYTHMIA [None]
  - ASTHENIA [None]
  - DIZZINESS [None]
  - ECZEMA [None]
  - HEADACHE [None]
  - HYPERTENSION [None]
  - SPEECH DISORDER [None]
  - VISUAL DISTURBANCE [None]
